FAERS Safety Report 5136656-8 (Version None)
Quarter: 2006Q4

REPORT INFORMATION
  Report Type: 
  Country: None (occurrence: None)
  Receive Date: 20061023
  Receipt Date: 20061017
  Transmission Date: 20070319
  Serious: Yes (Other)
  Sender: FDA-Public Use
  Company Number: 148800USA

PATIENT
  Age: 12 Year
  Sex: Male

DRUGS (1)
  1. CLINDAMYCIN HCL [Suspect]
     Indication: STAPHYLOCOCCAL INFECTION
     Dosage: 450 MG (150 MG, 3 IN 1 D)

REACTIONS (3)
  - HALLUCINATION [None]
  - MIGRAINE [None]
  - TINNITUS [None]
